FAERS Safety Report 5945877-3 (Version None)
Quarter: 2008Q4

REPORT INFORMATION
  Report Type: 
  Country: None (occurrence: None)
  Receive Date: 20081106
  Receipt Date: 20081028
  Transmission Date: 20090506
  Serious: Yes (Hospitalization)
  Sender: FDA-Public Use
  Company Number: 2008BI025206

PATIENT
  Age: 46 Year
  Sex: Female

DRUGS (4)
  1. TYSABRI [Suspect]
     Indication: RELAPSING-REMITTING MULTIPLE SCLEROSIS
     Dosage: 300 MG;QM;IV
     Route: 042
     Dates: start: 20071218, end: 20080826
  2. MYSOLINE [Suspect]
     Indication: TREMOR
     Dosage: 250 MG;BID;PO
     Route: 048
     Dates: start: 20080501, end: 20080924
  3. LAMICTAL [Concomitant]
  4. PROPRANOLOL [Concomitant]

REACTIONS (6)
  - ANAEMIA HAEMOLYTIC AUTOIMMUNE [None]
  - BLOOD FOLATE DECREASED [None]
  - CEREBELLAR SYNDROME [None]
  - PARAESTHESIA [None]
  - VERTIGO [None]
  - VITAMIN B1 DECREASED [None]
